FAERS Safety Report 4484245-0 (Version None)
Quarter: 2004Q4

REPORT INFORMATION
  Report Type: 
  Country: None (occurrence: None)
  Receive Date: 20041025
  Receipt Date: 20041001
  Transmission Date: 20050328
  Serious: Yes (Other)
  Sender: FDA-Public Use
  Company Number: CH-GLAXOSMITHKLINE-B0347345A

PATIENT
  Age: 54 Year
  Sex: Female

DRUGS (1)
  1. ZINACEF [Suspect]
     Indication: PROPHYLAXIS
     Route: 042
     Dates: start: 20040907, end: 20040907

REACTIONS (7)
  - ARRHYTHMIA [None]
  - BLOOD PRESSURE DECREASED [None]
  - BRONCHOSPASM [None]
  - CARDIOGENIC SHOCK [None]
  - HYPERSENSITIVITY [None]
  - OXYGEN SATURATION [None]
  - RESPIRATORY DISORDER [None]
